FAERS Safety Report 9409538 (Version 1)
Quarter: 2013Q3

REPORT INFORMATION
  Report Type: Spontaneous
  Country: US (occurrence: US)
  Receive Date: 20130719
  Receipt Date: 20130719
  Transmission Date: 20140515
  Serious: Yes (Other)
  Sender: FDA-Public Use
  Company Number: US-JNJFOC-20130707717

PATIENT
  Sex: 0

DRUGS (3)
  1. DOXORUBICIN [Suspect]
     Indication: PLASMA CELL MYELOMA
     Dosage: 30-90 MIN ON DAYS 1, 4, 8, AND 11 OF EACH CYCLE
     Route: 042
  2. POMALIDOMIDE [Suspect]
     Indication: PLASMA CELL MYELOMA
     Dosage: 2, 3, OR 4 MG DAILY IN 3 SUCCESSIVE COHORTS OF 3 PTS EACH ON DAYS 1-21 OF EACH 28 DAY CYCLE
     Route: 048
  3. DEXAMETHASONE [Suspect]
     Indication: PLASMA CELL MYELOMA
     Dosage: OVER 30 MIN ON DAYS 1, 4, 8, AND 11 OF EACH CYCLE
     Route: 042

REACTIONS (4)
  - Leukopenia [Unknown]
  - Neutropenia [Unknown]
  - Lymphopenia [Unknown]
  - Hyponatraemia [Unknown]
